FAERS Safety Report 6549761-6 (Version None)
Quarter: 2010Q1

REPORT INFORMATION
  Report Type: 
  Country: None (occurrence: None)
  Receive Date: 20100125
  Receipt Date: 20100118
  Transmission Date: 20100710
  Serious: Yes (Hospitalization, Other)
  Sender: FDA-Public Use
  Company Number: SA-ROXANE LABORATORIES, INC.-2010-RO-00046RO

PATIENT
  Age: 35 Year
  Sex: Female

DRUGS (16)
  1. METHOTREXATE [Suspect]
     Indication: RHEUMATOID ARTHRITIS
  2. DIGOXIN [Suspect]
     Indication: CARDIAC FAILURE
  3. FUROSEMIDE [Suspect]
     Indication: CARDIAC FAILURE
  4. IDARUBICIN HCL [Suspect]
     Indication: ACUTE MYELOID LEUKAEMIA
  5. CYTOSINE ARABINOSIDE [Suspect]
     Indication: ACUTE MYELOID LEUKAEMIA
  6. CYTOSINE ARABINOSIDE [Suspect]
     Indication: LEUKAEMIA RECURRENT
  7. ETOPOSIDE [Suspect]
     Indication: ACUTE MYELOID LEUKAEMIA
  8. ETOPOSIDE [Suspect]
     Indication: LEUKAEMIA RECURRENT
  9. COLISTIN [Suspect]
     Indication: SEPTIC SHOCK
     Route: 042
  10. OMEPRAZOLE [Suspect]
  11. MITOXANTRONE [Suspect]
     Indication: LEUKAEMIA RECURRENT
  12. AMPHOTERICIN B [Suspect]
     Indication: CANDIDIASIS
  13. VORICONAZOLE [Suspect]
     Indication: CANDIDIASIS
  14. PIPERACILLIN AND TAZOBACTAM [Suspect]
     Indication: KLEBSIELLA INFECTION
  15. CAPTOPRIL [Suspect]
     Indication: CARDIAC FAILURE
  16. BLOOD PRODUCTS [Concomitant]
     Indication: SEPTIC SHOCK

REACTIONS (12)
  - ACUTE MYELOID LEUKAEMIA [None]
  - ACUTE RESPIRATORY DISTRESS SYNDROME [None]
  - CANDIDIASIS [None]
  - CARDIAC FAILURE [None]
  - DISSEMINATED INTRAVASCULAR COAGULATION [None]
  - HAEMORRHAGIC DIATHESIS [None]
  - KLEBSIELLA INFECTION [None]
  - LEUKAEMIA RECURRENT [None]
  - MYELODYSPLASTIC SYNDROME [None]
  - RENAL FAILURE ACUTE [None]
  - SEPTIC SHOCK [None]
  - STENOTROPHOMONAS INFECTION [None]
